FAERS Safety Report 25415032 (Version 4)
Quarter: 2025Q4

REPORT INFORMATION
  Report Type: Spontaneous
  Country: JP (occurrence: JP)
  Receive Date: 20250609
  Receipt Date: 20251130
  Transmission Date: 20260118
  Serious: Yes (Other)
  Sender: NOVARTIS
  Company Number: JP-002147023-NVSJ2025JP006142

PATIENT
  Age: 79 Year
  Sex: Male
  Weight: 80 kg

DRUGS (6)
  1. TABRECTA [Suspect]
     Active Substance: CAPMATINIB
     Indication: Non-small cell lung cancer
     Dosage: 200 MG, BID
     Route: 048
     Dates: start: 20240913, end: 20250411
  2. FUROSEMIDE [Concomitant]
     Active Substance: FUROSEMIDE
     Indication: Oedema
     Dosage: 30 MG, QD
     Route: 048
     Dates: start: 20240510
  3. HERBALS [Concomitant]
     Active Substance: HERBALS
     Indication: Oedema
     Dosage: 2.5 MG, TID
     Route: 065
     Dates: start: 20240823
  4. MIROGABALIN BESYLATE [Concomitant]
     Active Substance: MIROGABALIN BESYLATE
     Indication: Neuralgia
     Dosage: 5 MG, BID
     Route: 065
     Dates: start: 20241101
  5. DULOXETINE [Concomitant]
     Active Substance: DULOXETINE
     Indication: Neuralgia
     Dosage: 20 MG, QD
     Route: 065
     Dates: start: 20240328
  6. MIYA-BM [Concomitant]
     Active Substance: CLOSTRIDIUM BUTYRICUM SPORES STRAIN M-55
     Indication: Constipation
     Dosage: 1 G, TID
     Route: 065
     Dates: start: 20250207

REACTIONS (3)
  - Organising pneumonia [Recovered/Resolved]
  - Productive cough [Recovered/Resolved]
  - Staphylococcal infection [Unknown]

NARRATIVE: CASE EVENT DATE: 20250207
